FAERS Safety Report 22176861 (Version 1)
Quarter: 2023Q2

REPORT INFORMATION
  Report Type: Spontaneous
  Country: US (occurrence: US)
  Receive Date: 20230405
  Receipt Date: 20230405
  Transmission Date: 20230721
  Serious: No
  Sender: FDA-Public Use
  Company Number: US-BAYER-2023A043121

PATIENT
  Sex: Male

DRUGS (8)
  1. CIPROFLOXACIN HYDROCHLORIDE [Suspect]
     Active Substance: CIPROFLOXACIN HYDROCHLORIDE
  2. LEVOFLOXACIN [Suspect]
     Active Substance: LEVOFLOXACIN
  3. AZITHROMYCIN [Suspect]
     Active Substance: AZITHROMYCIN
  4. CEFAZOLIN SODIUM [Suspect]
     Active Substance: CEFAZOLIN SODIUM
  5. FENTANYL [Suspect]
     Active Substance: FENTANYL
  6. ROCEPHIN [Suspect]
     Active Substance: CEFTRIAXONE SODIUM
  7. TORADOL [Suspect]
     Active Substance: KETOROLAC TROMETHAMINE
  8. NORCO [Suspect]
     Active Substance: ACETAMINOPHEN\HYDROCODONE BITARTRATE

REACTIONS (1)
  - Hypersensitivity [Recovered/Resolved]
